FAERS Safety Report 7150110-3 (Version None)
Quarter: 2010Q4

REPORT INFORMATION
  Report Type: 
  Country: None (occurrence: None)
  Receive Date: 20101122
  Receipt Date: 20101116
  Transmission Date: 20110411
  Serious: Yes (Hospitalization, Other)
  Sender: FDA-Public Use
  Company Number: 2010SP051441

PATIENT
  Age: 36 Year
  Sex: Female
  Weight: 66.2252 kg

DRUGS (1)
  1. NUVARING [Suspect]
     Indication: CONTRACEPTION
     Dosage: VAG
     Route: 067
     Dates: start: 20070101, end: 20081020

REACTIONS (11)
  - ATELECTASIS [None]
  - CONSTIPATION [None]
  - DEEP VEIN THROMBOSIS [None]
  - FIBRIN D DIMER INCREASED [None]
  - INTERNATIONAL NORMALISED RATIO INCREASED [None]
  - LOBAR PNEUMONIA [None]
  - PAIN IN EXTREMITY [None]
  - PLEURAL EFFUSION [None]
  - PULMONARY EMBOLISM [None]
  - PULMONARY FIBROSIS [None]
  - PULMONARY INFARCTION [None]
